FAERS Safety Report 9629393 (Version 1)
Quarter: 2013Q4

REPORT INFORMATION
  Report Type: Spontaneous
  Country: US (occurrence: US)
  Receive Date: 20131017
  Receipt Date: 20131017
  Transmission Date: 20140711
  Serious: No
  Sender: FDA-Public Use
  Company Number: US-ASTRAZENECA-2013SE48127

PATIENT
  Age: 65 Year
  Sex: Female
  Weight: 69.4 kg

DRUGS (6)
  1. TENORMIN [Suspect]
     Indication: BLOOD PRESSURE ABNORMAL
     Route: 048
  2. CRESTOR [Suspect]
     Indication: BLOOD CHOLESTEROL ABNORMAL
     Route: 048
  3. UNSPECIFIED [Concomitant]
     Indication: HORMONE REPLACEMENT THERAPY
     Route: 048
  4. LEVOTHYROXINE [Concomitant]
     Dosage: 40 MCG DAILY
     Route: 048
  5. ASPIRIN [Concomitant]
     Route: 048
  6. VITAMINS [Concomitant]
     Route: 048

REACTIONS (5)
  - Mobility decreased [Not Recovered/Not Resolved]
  - Pain [Not Recovered/Not Resolved]
  - Arthralgia [Not Recovered/Not Resolved]
  - Feeling abnormal [Not Recovered/Not Resolved]
  - Pain in extremity [Not Recovered/Not Resolved]
